FAERS Safety Report 16768391 (Version 1)
Quarter: 2019Q3

REPORT INFORMATION
  Report Type: Spontaneous
  Country: CH (occurrence: CH)
  Receive Date: 20190903
  Receipt Date: 20190903
  Transmission Date: 20191005
  Serious: Yes (Death, Hospitalization, Other)
  Sender: FDA-Public Use
  Company Number: CH-009507513-1908CHE013223

PATIENT
  Sex: Female

DRUGS (1)
  1. KEYTRUDA [Suspect]
     Active Substance: PEMBROLIZUMAB
     Indication: TRANSITIONAL CELL CARCINOMA

REACTIONS (4)
  - Pulmonary haemorrhage [Unknown]
  - Renal failure [Unknown]
  - Pulmonary embolism [Unknown]
  - Death [Fatal]
